FAERS Safety Report 6259406-0 (Version None)
Quarter: 2009Q2

REPORT INFORMATION
  Report Type: 
  Country: None (occurrence: None)
  Receive Date: 20090617
  Receipt Date: 20090612
  Transmission Date: 20091009
  Serious: Yes (Hospitalization)
  Sender: FDA-Public Use
  Company Number: 2009020113

PATIENT
  Sex: Female
  Weight: 119.7 kg

DRUGS (28)
  1. VIVAGLOBIN [Suspect]
     Indication: IMMUNODEFICIENCY COMMON VARIABLE
     Dosage: SEE IMAGE
     Route: 058
     Dates: start: 20090416, end: 20090417
  2. VIVAGLOBIN [Suspect]
  3. VIVAGLOBIN [Suspect]
  4. VIVAGLOBIN [Suspect]
  5. VIVAGLOBIN [Suspect]
  6. VIVAGLOBIN [Suspect]
  7. BYETTA (DRUG USED IN DIABETES) [Concomitant]
  8. OXYGEN (OXYGEN) [Concomitant]
  9. LIDOCAINE/PRILOCAINE (LIDOCAINE) [Concomitant]
  10. PHENERGAN (PHENERGAN /01851401/) [Concomitant]
  11. DIPHENHYDRAMINE HCL [Concomitant]
  12. ATIVAN [Concomitant]
  13. EFFEXOR [Concomitant]
  14. LUVOX [Concomitant]
  15. LASIX [Concomitant]
  16. TOPAMAX [Concomitant]
  17. NORVASC [Concomitant]
  18. DIOVAN [Concomitant]
  19. ALLEGRA [Concomitant]
  20. OS-CAL (OS-CAL) [Concomitant]
  21. GLYBURIDE [Concomitant]
  22. PULMICORT [Concomitant]
  23. PREVACID [Concomitant]
  24. ACCOLATE [Concomitant]
  25. METHOCARBAMOL [Concomitant]
  26. ASPIRIN [Concomitant]
  27. RISPERDAL [Concomitant]
  28. DUONEB [Concomitant]

REACTIONS (2)
  - INJECTION SITE REACTION [None]
  - MENINGITIS ASEPTIC [None]
